FAERS Safety Report 8313316-3 (Version None)
Quarter: 2012Q2

REPORT INFORMATION
  Report Type: 
  Country: None (occurrence: None)
  Receive Date: 20120426
  Receipt Date: 20120417
  Transmission Date: 20120825
  Serious: Yes (Other)
  Sender: FDA-Public Use
  Company Number: PHEH2012US008245

PATIENT
  Sex: Female

DRUGS (2)
  1. LETROZOLE [Suspect]
     Indication: BREAST CANCER
  2. ZOMETA [Suspect]
     Indication: METASTASES TO BONE
     Dosage: UNK
     Route: 042

REACTIONS (13)
  - NEOPLASM MALIGNANT [None]
  - BONE PAIN [None]
  - HYPOAESTHESIA [None]
  - PAIN [None]
  - NEUROPATHY PERIPHERAL [None]
  - HOT FLUSH [None]
  - COUGH [None]
  - METASTASES TO LIVER [None]
  - GAIT DISTURBANCE [None]
  - BACK PAIN [None]
  - NEOPLASM PROGRESSION [None]
  - WEIGHT DECREASED [None]
  - DYSGEUSIA [None]
